FAERS Safety Report 18719040 (Version 1)
Quarter: 2021Q1

REPORT INFORMATION
  Report Type: Spontaneous
  Country: US (occurrence: US)
  Receive Date: 20210108
  Receipt Date: 20210108
  Transmission Date: 20210419
  Serious: No
  Sender: FDA-Public Use
  Company Number: US-NOVOPROD-776984

PATIENT
  Age: 36 Year
  Sex: Female
  Weight: 290 kg

DRUGS (1)
  1. RYBELSUS [Suspect]
     Active Substance: SEMAGLUTIDE
     Indication: TYPE 2 DIABETES MELLITUS
     Dosage: 3 MG
     Route: 048

REACTIONS (2)
  - Product dose omission issue [Unknown]
  - Hunger [Recovered/Resolved]

NARRATIVE: CASE EVENT DATE: 2020
